FAERS Safety Report 21388186 (Version 2)
Quarter: 2022Q4

REPORT INFORMATION
  Report Type: Spontaneous
  Country: US (occurrence: US)
  Receive Date: 20220928
  Receipt Date: 20221006
  Transmission Date: 20230113
  Serious: Yes (Hospitalization, Other)
  Sender: FDA-Public Use
  Company Number: US-ALLERGAN-2231364US

PATIENT
  Sex: Female

DRUGS (10)
  1. VRAYLAR [Interacting]
     Active Substance: CARIPRAZINE
     Indication: Product used for unknown indication
     Dosage: UNK
  2. FLUVOXAMINE [Interacting]
     Active Substance: FLUVOXAMINE
     Indication: Product used for unknown indication
     Dosage: UNK
  3. ZYPREXA [Suspect]
     Active Substance: OLANZAPINE
     Indication: Product used for unknown indication
     Dosage: UNK
  4. ABILIFY MAINTENA [Interacting]
     Active Substance: ARIPIPRAZOLE
     Indication: Product used for unknown indication
     Dosage: AT 400, UNK
     Route: 030
  5. SUBOXONE [Interacting]
     Active Substance: BUPRENORPHINE HYDROCHLORIDE\NALOXONE HYDROCHLORIDE
     Indication: Product used for unknown indication
     Dosage: 8 MG, UNKNOWN
     Route: 060
  6. SEROQUEL [Suspect]
     Active Substance: QUETIAPINE FUMARATE
     Indication: Product used for unknown indication
     Dosage: UNK
  7. LUVOX [Interacting]
     Active Substance: FLUVOXAMINE MALEATE
     Indication: Product used for unknown indication
     Dosage: UNK
  8. SYNTHROID [Suspect]
     Active Substance: LEVOTHYROXINE SODIUM
     Indication: Product used for unknown indication
     Dosage: UNK
  9. ESTARYLLA [Suspect]
     Active Substance: ETHINYL ESTRADIOL\NORGESTIMATE
     Indication: Product used for unknown indication
  10. EPCLUSA [Suspect]
     Active Substance: SOFOSBUVIR\VELPATASVIR
     Indication: Product used for unknown indication
     Dosage: UNK

REACTIONS (24)
  - Psychotic disorder [Unknown]
  - Blood pressure fluctuation [Not Recovered/Not Resolved]
  - Serotonin syndrome [Unknown]
  - Hallucination, auditory [Not Recovered/Not Resolved]
  - Loss of consciousness [Unknown]
  - Drug abuse [Unknown]
  - Delirium [Not Recovered/Not Resolved]
  - Constipation [Not Recovered/Not Resolved]
  - Encephalopathy [Unknown]
  - Oxygen saturation decreased [Not Recovered/Not Resolved]
  - Piloerection [Not Recovered/Not Resolved]
  - Amnesia [Unknown]
  - Drug withdrawal syndrome [Unknown]
  - Rash vesicular [Unknown]
  - Feeling of body temperature change [Not Recovered/Not Resolved]
  - Nystagmus [Not Recovered/Not Resolved]
  - Mydriasis [Unknown]
  - Hyperhidrosis [Not Recovered/Not Resolved]
  - Abdominal pain upper [Unknown]
  - Tremor [Not Recovered/Not Resolved]
  - Restlessness [Unknown]
  - Insomnia [Not Recovered/Not Resolved]
  - Overdose [Not Recovered/Not Resolved]
  - Drug interaction [Not Recovered/Not Resolved]
